FAERS Safety Report 8003180-4 (Version None)
Quarter: 2011Q4

REPORT INFORMATION
  Report Type: 
  Country: None (occurrence: None)
  Receive Date: 20111222
  Receipt Date: 20111214
  Transmission Date: 20120403
  Serious: Yes (Other)
  Sender: FDA-Public Use
  Company Number: PHHY2011US65823

PATIENT
  Sex: Female

DRUGS (12)
  1. GILENYA [Suspect]
     Indication: MULTIPLE SCLEROSIS
     Dosage: 0.5 MG, QD
     Route: 048
     Dates: start: 20110427, end: 20111101
  2. CALCIUM WITH VITAMIN D [Concomitant]
     Dosage: 1 DF, BID
     Route: 048
  3. CYCLOBENZAPRINE HCL [Concomitant]
     Dosage: 0.5-1 TAB 3 TIMES DAILY AS NEEDED, TID
     Dates: start: 20111005
  4. ACETAMINOPHEN [Concomitant]
  5. BACLOFEN [Concomitant]
     Dosage: 1 DF, Q6H
     Route: 048
  6. LEVOTHYROXINE SODIUM [Concomitant]
     Dosage: 1 DF, DAILY
     Route: 048
  7. SYNTHROID [Concomitant]
     Dosage: 1 DF, QD
     Route: 048
  8. NEXIUM [Concomitant]
     Dosage: 1 DF, DAILY
     Route: 048
  9. METOPROLOL TARTRATE [Concomitant]
     Dosage: 0.5 DF, BID
     Route: 048
  10. IBUPROFEN (ADVIL) [Concomitant]
     Dosage: UNK UKN, UNK
  11. AMBIEN CR [Concomitant]
     Indication: SLEEP DISORDER
     Dosage: 1 TABLET AT BED TIME AS NEEDED
     Route: 048
  12. CYMBALTA [Concomitant]
     Dosage: 1 DF, QD
     Route: 048

REACTIONS (23)
  - HYPOAESTHESIA [None]
  - NECK PAIN [None]
  - PARAESTHESIA [None]
  - COUGH [None]
  - LUMBAR SPINAL STENOSIS [None]
  - PAIN IN EXTREMITY [None]
  - FATIGUE [None]
  - GROIN PAIN [None]
  - MYALGIA [None]
  - DECREASED APPETITE [None]
  - HYPERTENSION [None]
  - TEMPORAL ARTERITIS [None]
  - TENDERNESS [None]
  - ATAXIA [None]
  - MIGRAINE [None]
  - BACK PAIN [None]
  - EYE PAIN [None]
  - LEUKOPENIA [None]
  - HEMIPARESIS [None]
  - TACHYCARDIA [None]
  - MUSCLE SPASMS [None]
  - SINUSITIS [None]
  - TENSION HEADACHE [None]
